FAERS Safety Report 9183496 (Version 1)
Quarter: 2013Q1

REPORT INFORMATION
  Report Type: Spontaneous
  Country: US (occurrence: US)
  Receive Date: 20130322
  Receipt Date: 20130322
  Transmission Date: 20140127
  Serious: No
  Sender: FDA-Public Use
  Company Number: US-BRISTOL-MYERS SQUIBB COMPANY-16433138

PATIENT
  Age: 74 Year
  Sex: Male
  Weight: 98 kg

DRUGS (2)
  1. ERBITUX [Suspect]
     Indication: LUNG NEOPLASM MALIGNANT
     Dosage: NO OF TREATMENT:5
     Dates: start: 20120202
  2. ERBITUX [Suspect]
     Indication: THROAT CANCER
     Dosage: NO OF TREATMENT:5
     Dates: start: 20120202

REACTIONS (3)
  - Rash erythematous [Unknown]
  - Oral pain [Recovering/Resolving]
  - Weight decreased [Unknown]
